FAERS Safety Report 21082094 (Version 2)
Quarter: 2023Q4

REPORT INFORMATION
  Report Type: Spontaneous
  Country: CN (occurrence: CN)
  Receive Date: 20220714
  Receipt Date: 20231006
  Transmission Date: 20240110
  Serious: Yes (Life-Threatening)
  Sender: FDA-Public Use
  Company Number: CN-BAYER-2022A097487

PATIENT
  Age: 57 Year
  Sex: Male

DRUGS (1)
  1. ULTRAVIST [Suspect]
     Active Substance: IOPROMIDE
     Dosage: UNK UNK, ONCE
     Dates: start: 20220712, end: 20220712

REACTIONS (4)
  - Blood pressure decreased [Recovering/Resolving]
  - Hypoaesthesia oral [None]
  - Conjunctival hyperaemia [None]
  - Flushing [None]

NARRATIVE: CASE EVENT DATE: 20220712
